FAERS Safety Report 25598763 (Version 2)
Quarter: 2025Q4

REPORT INFORMATION
  Report Type: Report from Study
  Country: US (occurrence: US)
  Receive Date: 20250724
  Receipt Date: 20251217
  Transmission Date: 20260118
  Serious: Yes (Other)
  Sender: ABBVIE
  Company Number: US-ABBVIE-6383085

PATIENT
  Age: 59 Year
  Sex: Male

DRUGS (3)
  1. SKYRIZI [Suspect]
     Active Substance: RISANKIZUMAB-RZAA
     Indication: Psoriasis
     Dosage: WEEK 0?150MG/ML
     Route: 058
     Dates: start: 20250329, end: 20250329
  2. SKYRIZI [Suspect]
     Active Substance: RISANKIZUMAB-RZAA
     Dosage: WEEK 4?150MG/ML
     Route: 058
     Dates: start: 20250425, end: 20250425
  3. SKYRIZI [Suspect]
     Active Substance: RISANKIZUMAB-RZAA
     Dosage: 150MG/ML
     Route: 058
     Dates: start: 20250719

REACTIONS (3)
  - Diabetic foot [Unknown]
  - Psoriasis [Unknown]
  - Diabetes mellitus [Unknown]

NARRATIVE: CASE EVENT DATE: 20250101
